FAERS Safety Report 7016890-2 (Version None)
Quarter: 2010Q3

REPORT INFORMATION
  Report Type: 
  Country: None (occurrence: None)
  Receive Date: 20100927
  Receipt Date: 20100916
  Transmission Date: 20110219
  Serious: Yes (Hospitalization, Other)
  Sender: FDA-Public Use
  Company Number: US-AMGEN-QUU428207

PATIENT
  Sex: Male
  Weight: 115.8 kg

DRUGS (7)
  1. SENSIPAR [Suspect]
     Indication: HYPERPARATHYROIDISM SECONDARY
     Route: 048
     Dates: start: 20090504, end: 20100519
  2. ASPIRIN [Concomitant]
     Route: 048
  3. ZOCOR [Concomitant]
     Route: 048
  4. PHOSLO [Concomitant]
     Route: 048
  5. CALCIUM ACETATE [Concomitant]
     Route: 048
  6. MULTI-VITAMINS [Concomitant]
     Route: 048
  7. DARVOCET-N 100 [Concomitant]

REACTIONS (16)
  - ABDOMINAL PAIN [None]
  - CEREBRAL INFARCTION [None]
  - CONVULSION [None]
  - DECREASED APPETITE [None]
  - DIARRHOEA [None]
  - ENCEPHALOMALACIA [None]
  - FALL [None]
  - LIPASE INCREASED [None]
  - LOSS OF CONSCIOUSNESS [None]
  - LUNG INFILTRATION [None]
  - MACROGLOSSIA [None]
  - MENTAL DISORDER [None]
  - NAUSEA [None]
  - POSTICTAL STATE [None]
  - SOMNOLENCE [None]
  - VOMITING [None]
